FAERS Safety Report 10465849 (Version 1)
Quarter: 2014Q3

REPORT INFORMATION
  Report Type: Report from Study
  Country: CO (occurrence: CO)
  Receive Date: 20140921
  Receipt Date: 20140921
  Transmission Date: 20150326
  Serious: Yes (Death)
  Sender: FDA-Public Use
  Company Number: CO-BRISTOL-MYERS SQUIBB COMPANY-21393871

PATIENT
  Sex: Female

DRUGS (1)
  1. IXEMPRA [Suspect]
     Active Substance: IXABEPILONE
     Indication: BREAST CANCER METASTATIC
     Dosage: INTERRPUTED: 13AUG2014
     Route: 042
     Dates: start: 20130611, end: 20140813

REACTIONS (1)
  - Death [Fatal]

NARRATIVE: CASE EVENT DATE: 20140909
